FAERS Safety Report 9355805 (Version 2)
Quarter: 2013Q3

REPORT INFORMATION
  Report Type: Spontaneous
  Country: JP (occurrence: JP)
  Receive Date: 20130619
  Receipt Date: 20130808
  Transmission Date: 20140515
  Serious: Yes (Hospitalization, Other)
  Sender: FDA-Public Use
  Company Number: JP-ROCHE-1231498

PATIENT
  Age: 75 Year
  Sex: Female
  Weight: 59 kg

DRUGS (10)
  1. AVASTIN [Suspect]
     Indication: COLORECTAL CANCER METASTATIC
     Route: 041
     Dates: start: 20110701, end: 20120615
  2. AVASTIN [Suspect]
     Indication: COLORECTAL CANCER METASTATIC
     Route: 041
     Dates: start: 20120629, end: 20120810
  3. AVASTIN [Suspect]
     Indication: COLORECTAL CANCER METASTATIC
     Route: 041
     Dates: start: 20120824, end: 20130405
  4. AVASTIN [Suspect]
     Indication: COLORECTAL CANCER METASTATIC
     Route: 041
     Dates: start: 20130419
  5. ELPLAT [Suspect]
     Indication: COLORECTAL CANCER METASTATIC
     Route: 041
     Dates: start: 20110701, end: 20111028
  6. ELPLAT [Suspect]
     Indication: COLORECTAL CANCER METASTATIC
     Dosage: DOSAGE IS UNCERTAIN.
     Route: 041
     Dates: start: 20120511, end: 20130322
  7. LEVOFOLINATE [Concomitant]
     Indication: COLORECTAL CANCER METASTATIC
     Route: 041
     Dates: start: 20110701
  8. 5-FU [Concomitant]
     Indication: COLORECTAL CANCER METASTATIC
     Dosage: DOSAGE IS UNCERTAIN.
     Route: 040
     Dates: start: 20110701
  9. 5-FU [Concomitant]
     Indication: COLORECTAL CANCER METASTATIC
     Route: 041
     Dates: start: 20110701
  10. IRINOTECAN HYDROCHLORIDE [Concomitant]
     Indication: COLORECTAL CANCER METASTATIC
     Route: 041
     Dates: start: 20130419

REACTIONS (8)
  - Gastrointestinal haemorrhage [Recovering/Resolving]
  - Malaise [Unknown]
  - Ascites [Unknown]
  - Venous insufficiency [Unknown]
  - Varicose vein [Unknown]
  - Malnutrition [Unknown]
  - Neuropathy peripheral [Unknown]
  - Proteinuria [Unknown]
